FAERS Safety Report 17595372 (Version 2)
Quarter: 2020Q2

REPORT INFORMATION
  Report Type: Spontaneous
  Country: US (occurrence: US)
  Receive Date: 20200329
  Receipt Date: 20200421
  Transmission Date: 20200713
  Serious: No
  Sender: FDA-Public Use
  Company Number: US-ASTRAZENECA-2020SE33693

PATIENT
  Sex: Female
  Weight: 49 kg

DRUGS (4)
  1. TRENTAL [Concomitant]
     Active Substance: PENTOXIFYLLINE
     Indication: BLOOD DISORDER
     Route: 065
  2. SYMBICORT [Suspect]
     Active Substance: BUDESONIDE\FORMOTEROL FUMARATE DIHYDRATE
     Indication: CHRONIC OBSTRUCTIVE PULMONARY DISEASE
     Dosage: 160/4.5 MCG, TWO TIMES A DAY.
     Route: 055
  3. THYROID MEDICINE [Concomitant]
     Active Substance: UNSPECIFIED INGREDIENT
     Indication: HYPOTHYROIDISM
     Route: 065
  4. NEBULIZER [Concomitant]
     Active Substance: DEVICE
     Route: 065

REACTIONS (5)
  - Dyspnoea [Unknown]
  - Device malfunction [Unknown]
  - Incorrect dose administered by device [Unknown]
  - Drug dose omission by device [Unknown]
  - Intentional device misuse [Unknown]
